FAERS Safety Report 5511517-0 (Version None)
Quarter: 2007Q4

REPORT INFORMATION
  Report Type: 
  Country: None (occurrence: None)
  Receive Date: 20071109
  Receipt Date: 20071102
  Transmission Date: 20080405
  Serious: Yes (Hospitalization)
  Sender: FDA-Public Use
  Company Number: B0494154A

PATIENT
  Age: 60 Year
  Sex: Female

DRUGS (7)
  1. ARIXTRA [Suspect]
     Indication: DEEP VEIN THROMBOSIS
     Dosage: 7.5MG PER DAY
     Route: 058
     Dates: start: 20070601, end: 20070614
  2. PREVISCAN [Suspect]
     Indication: DEEP VEIN THROMBOSIS
     Dosage: 20MG PER DAY
     Route: 048
     Dates: start: 20070602, end: 20070612
  3. LEVOTHYROXINE SODIUM [Concomitant]
  4. FENOFIBRATE [Concomitant]
  5. DETENSIEL [Concomitant]
  6. PROZAC [Concomitant]
  7. PROPOFAN [Concomitant]

REACTIONS (9)
  - ABDOMINAL PAIN UPPER [None]
  - DYSURIA [None]
  - HAEMATURIA [None]
  - HEADACHE [None]
  - HYPOCOAGULABLE STATE [None]
  - OVERDOSE [None]
  - PAIN IN EXTREMITY [None]
  - PYREXIA [None]
  - VOMITING [None]
